FAERS Safety Report 9278296 (Version 1)
Quarter: 2013Q2

REPORT INFORMATION
  Report Type: Spontaneous
  Country: US (occurrence: None)
  Receive Date: 20130506
  Receipt Date: 20130506
  Transmission Date: 20140414
  Serious: Yes (Other)
  Sender: FDA-Public Use
  Company Number: None

PATIENT
  Age: 52 Year
  Sex: Male
  Weight: 72.58 kg

DRUGS (2)
  1. REMICADE [Suspect]
     Indication: RHEUMATOID ARTHRITIS
     Dosage: 7 VIALS EVERY FOUR WEEKS IV DRIP
     Route: 041
     Dates: start: 19970101, end: 20120817
  2. REMICADE [Suspect]
     Indication: CROHN^S DISEASE
     Dosage: 7 VIALS EVERY FOUR WEEKS IV DRIP
     Route: 041
     Dates: start: 19970101, end: 20120817

REACTIONS (4)
  - Pyrexia [None]
  - Fungal infection [None]
  - Pneumonia [None]
  - Bronchitis [None]
